FAERS Safety Report 14518917 (Version 2)
Quarter: 2018Q1

REPORT INFORMATION
  Report Type: Report from Study
  Country: CO (occurrence: CO)
  Receive Date: 20180212
  Receipt Date: 20180227
  Transmission Date: 20180509
  Serious: Yes (Hospitalization)
  Sender: FDA-Public Use
  Company Number: CO-INCYTE CORPORATION-2018IN001159

PATIENT

DRUGS (1)
  1. JAKAVI [Suspect]
     Active Substance: RUXOLITINIB
     Indication: MYELOFIBROSIS
     Dosage: 20 MG, BID
     Route: 048
     Dates: start: 20170331

REACTIONS (6)
  - Bladder dilatation [Unknown]
  - Blister [Unknown]
  - Urinary bladder haemorrhage [Unknown]
  - Bone pain [Unknown]
  - Blood blister [Unknown]
  - Cystitis [Unknown]
